FAERS Safety Report 5955788-5 (Version None)
Quarter: 2008Q4

REPORT INFORMATION
  Report Type: 
  Country: None (occurrence: None)
  Receive Date: 20081117
  Receipt Date: 20081107
  Transmission Date: 20090506
  Serious: Yes (Other)
  Sender: FDA-Public Use
  Company Number: GB-BAXTER-2008BH012008

PATIENT
  Age: 39 Year
  Sex: Male

DRUGS (5)
  1. CYCLOPHOSPHAMIDE [Suspect]
     Indication: CONJUNCTIVITIS
     Dosage: DOSE UNIT:UNKNOWN
     Route: 065
     Dates: start: 20051001
  2. AZATHIOPRINE [Suspect]
     Indication: CONJUNCTIVITIS
     Dosage: DOSE UNIT:UNKNOWN
     Route: 065
     Dates: start: 20040801, end: 20050501
  3. DAPSONE [Suspect]
     Indication: CONJUNCTIVITIS
     Dosage: DOSE UNIT:UNKNOWN
     Route: 065
     Dates: start: 20040401
  4. MYCOPHENOLATE SODIUM [Suspect]
     Indication: CONJUNCTIVITIS
     Dosage: DOSE UNIT:UNKNOWN
     Route: 065
     Dates: start: 20050501
  5. PREDNISOLONE [Suspect]
     Indication: CONJUNCTIVITIS
     Dosage: DOSE UNIT:UNKNOWN
     Route: 065
     Dates: start: 20040801

REACTIONS (1)
  - EYE INFECTION BACTERIAL [None]
